FAERS Safety Report 12710883 (Version 2)
Quarter: 2016Q3

REPORT INFORMATION
  Report Type: Spontaneous
  Country: US (occurrence: US)
  Receive Date: 20160902
  Receipt Date: 20160930
  Transmission Date: 20161109
  Serious: Yes (Death, Other)
  Sender: FDA-Public Use
  Company Number: US-JNJFOC-20160702406

PATIENT
  Age: 66 Year
  Sex: Female
  Weight: 48.54 kg

DRUGS (6)
  1. INVOKANA [Suspect]
     Active Substance: CANAGLIFLOZIN
     Indication: PRODUCT USED FOR UNKNOWN INDICATION
     Route: 048
     Dates: start: 201605, end: 201606
  2. ACETAMINOPHEN. [Concomitant]
     Active Substance: ACETAMINOPHEN
     Route: 065
  3. METFORMIN [Suspect]
     Active Substance: METFORMIN HYDROCHLORIDE
     Indication: PRODUCT USED FOR UNKNOWN INDICATION
     Route: 065
  4. GLIPIZIDE. [Suspect]
     Active Substance: GLIPIZIDE
     Indication: PRODUCT USED FOR UNKNOWN INDICATION
     Route: 065
  5. SIMVASTATIN. [Suspect]
     Active Substance: SIMVASTATIN
     Indication: PRODUCT USED FOR UNKNOWN INDICATION
     Route: 065
  6. OXALIPLATIN. [Concomitant]
     Active Substance: OXALIPLATIN
     Route: 065

REACTIONS (5)
  - Asthenia [Not Recovered/Not Resolved]
  - Fall [Not Recovered/Not Resolved]
  - Laceration [Not Recovered/Not Resolved]
  - Pain in extremity [Not Recovered/Not Resolved]
  - Death [Fatal]

NARRATIVE: CASE EVENT DATE: 201605
